FAERS Safety Report 6278712-7 (Version None)
Quarter: 2009Q3

REPORT INFORMATION
  Report Type: 
  Country: None (occurrence: None)
  Receive Date: 20090721
  Receipt Date: 20090709
  Transmission Date: 20100115
  Serious: Yes (Hospitalization)
  Sender: FDA-Public Use
  Company Number: AE-2009-100

PATIENT
  Age: 68 Year
  Sex: Female

DRUGS (8)
  1. METFORMIN [Suspect]
     Indication: DIABETES MELLITUS
     Dosage: 3G, ORAL
     Route: 048
     Dates: end: 20080425
  2. GLIBENCLAMIDE [Suspect]
     Indication: DIABETES MELLITUS
     Dosage: 20MG, ORAL
     Route: 048
     Dates: end: 20080425
  3. SIMVASTATIN [Concomitant]
  4. LANTUS [Concomitant]
  5. LERCANIDIPINE [Concomitant]
  6. TELMISARTAN/HYDROCHLOROTHIAZIDE [Concomitant]
  7. GLUCOSAMINE HYDROCHLORIDE [Concomitant]
  8. SALMETEROL XINAFOATE/FLUTICASONE PROPIONATE [Concomitant]

REACTIONS (3)
  - DEHYDRATION [None]
  - LACTIC ACIDOSIS [None]
  - RENAL FAILURE ACUTE [None]
